FAERS Safety Report 18233461 (Version 1)
Quarter: 2020Q3

REPORT INFORMATION
  Report Type: Other
  Country: GB (occurrence: GB)
  Receive Date: 20200904
  Receipt Date: 20200904
  Transmission Date: 20201103
  Serious: Yes (Other)
  Sender: FDA-Public Use
  Company Number: GB-MACLEODS PHARMACEUTICALS US LTD-MAC2020027879

PATIENT

DRUGS (1)
  1. TOLTERODINE TARTRATE 4 MG [Suspect]
     Active Substance: TOLTERODINE TARTRATE
     Indication: PRODUCT USED FOR UNKNOWN INDICATION
     Dosage: 4 MILLIGRAM, MODIFIED?RELEASE TABLET
     Route: 065
     Dates: end: 2018

REACTIONS (3)
  - Hypergammaglobulinaemia benign monoclonal [Unknown]
  - Cognitive disorder [Not Recovered/Not Resolved]
  - Memory impairment [Recovering/Resolving]

NARRATIVE: CASE EVENT DATE: 2018
